FAERS Safety Report 5498552-6 (Version None)
Quarter: 2007Q4

REPORT INFORMATION
  Report Type: 
  Country: None (occurrence: None)
  Receive Date: 20071026
  Receipt Date: 20071018
  Transmission Date: 20080405
  Serious: Yes (Other)
  Sender: FDA-Public Use
  Company Number: GB-WYE-G00487307

PATIENT
  Sex: Female

DRUGS (2)
  1. EFFEXOR XR [Suspect]
     Route: 048
     Dates: start: 20070802, end: 20071015
  2. EFFEXOR XR [Suspect]
     Route: 048
     Dates: start: 20071016

REACTIONS (6)
  - CONDITION AGGRAVATED [None]
  - INSOMNIA [None]
  - INTENTIONAL SELF-INJURY [None]
  - MOOD SWINGS [None]
  - PANIC ATTACK [None]
  - TREMOR [None]
